FAERS Safety Report 18570198 (Version 2)
Quarter: 2020Q4

REPORT INFORMATION
  Report Type: Spontaneous
  Country: US (occurrence: US)
  Receive Date: 20201202
  Receipt Date: 20201207
  Transmission Date: 20210114
  Serious: No
  Sender: FDA-Public Use
  Company Number: NVSC2020US320742

PATIENT

DRUGS (1)
  1. NETSPOT [Suspect]
     Active Substance: DOTATATE GALLIUM GA-68
     Indication: PRODUCT USED FOR UNKNOWN INDICATION
     Dosage: DOSE WAS AT 7AM
     Route: 065

REACTIONS (2)
  - Nausea [Unknown]
  - Flushing [Unknown]
